FAERS Safety Report 21871992 (Version 1)
Quarter: 2023Q1

REPORT INFORMATION
  Report Type: Report from Study
  Country: JP (occurrence: JP)
  Receive Date: 20230117
  Receipt Date: 20230117
  Transmission Date: 20230418
  Serious: Yes (Death, Other)
  Sender: FDA-Public Use
  Company Number: JP-JNJFOC-20230119812

PATIENT
  Sex: Male

DRUGS (3)
  1. ABIRATERONE ACETATE [Suspect]
     Active Substance: ABIRATERONE ACETATE
     Indication: Prostate cancer metastatic
     Route: 048
  2. PREDNISONE [Suspect]
     Active Substance: PREDNISONE
     Indication: Prostate cancer metastatic
     Route: 065
  3. IPATASERTIB [Suspect]
     Active Substance: IPATASERTIB
     Indication: Prostate cancer metastatic
     Route: 065

REACTIONS (19)
  - Adverse event [Fatal]
  - Hyperglycaemia [Fatal]
  - Hepatotoxicity [Unknown]
  - Transaminases increased [Recovered/Resolved]
  - Erythema multiforme [Unknown]
  - Neutropenia [Unknown]
  - Pneumonia [Unknown]
  - Neuropathy peripheral [Unknown]
  - Pneumonitis [Unknown]
  - Thrombocytopenia [Unknown]
  - Diarrhoea [Recovered/Resolved]
  - Rash [Recovered/Resolved]
  - Asthenia [Unknown]
  - Colitis [Unknown]
  - Anaemia [Unknown]
  - Hyperlipidaemia [Unknown]
  - Nausea [Unknown]
  - Stomatitis [Unknown]
  - Vomiting [Unknown]
